FAERS Safety Report 4879452-9 (Version None)
Quarter: 2005Q4

REPORT INFORMATION
  Report Type: 
  Country: None (occurrence: None)
  Receive Date: 20051209
  Receipt Date: 20050907
  Transmission Date: 20060501
  Serious: Yes (Hospitalization)
  Sender: FDA-Public Use
  Company Number: 2014520

PATIENT
  Age: 52 Year
  Sex: Female
  Weight: 79.4 kg

DRUGS (15)
  1. OXYCONTIN [Suspect]
     Indication: PAIN
     Dosage: ORAL
     Route: 048
     Dates: start: 20010209
  2. ROXICODONE [Concomitant]
  3. KEFLEX [Concomitant]
  4. ELAVIL [Concomitant]
  5. CELEBREX [Concomitant]
  6. PREMARIN [Concomitant]
  7. LOTREL [Concomitant]
  8. PRILOSEC [Concomitant]
  9. ENBREL [Concomitant]
  10. METHOTREXATE [Concomitant]
  11. ATIVAN [Concomitant]
  12. PHENERGAN ^NATRAPHARM^ [Concomitant]
  13. MORPHINE SULFATE [Concomitant]
  14. MILK OF MAGNESIA TAB [Concomitant]
  15. CHLORASEPTIC [Concomitant]

REACTIONS (8)
  - ANXIETY [None]
  - CHEST PAIN [None]
  - HALLUCINATION [None]
  - HYPERSENSITIVITY [None]
  - NAUSEA [None]
  - NERVOUSNESS [None]
  - OEDEMA PERIPHERAL [None]
  - PRURITUS [None]
